FAERS Safety Report 18891870 (Version 1)
Quarter: 2021Q1

REPORT INFORMATION
  Report Type: Spontaneous
  Country: US (occurrence: US)
  Receive Date: 20210215
  Receipt Date: 20210215
  Transmission Date: 20210420
  Serious: Yes (Other)
  Sender: FDA-Public Use
  Company Number: US-LUPIN PHARMACEUTICALS INC.-2021-01808

PATIENT
  Age: 86 Year
  Sex: Male

DRUGS (3)
  1. NITROFURANTOIN. [Suspect]
     Active Substance: NITROFURANTOIN
     Indication: URINARY TRACT INFECTION
     Dosage: UNK (FIRST COURSE)
     Route: 065
  2. NITROFURANTOIN. [Suspect]
     Active Substance: NITROFURANTOIN
     Dosage: UNK (SECOND COURSE)
     Route: 065
  3. ACETAMINOPHEN. [Concomitant]
     Active Substance: ACETAMINOPHEN
     Indication: PRODUCT USED FOR UNKNOWN INDICATION
     Dosage: LONG STANDING TREATMENT
     Route: 065

REACTIONS (2)
  - Porphyria non-acute [Recovered/Resolved]
  - Drug-induced liver injury [Recovered/Resolved]
